FAERS Safety Report 6450497-0 (Version None)
Quarter: 2009Q4

REPORT INFORMATION
  Report Type: 
  Country: None (occurrence: None)
  Receive Date: 20091123
  Receipt Date: 20091109
  Transmission Date: 20100525
  Serious: Yes (Other)
  Sender: FDA-Public Use
  Company Number: PHEH2009US13682

PATIENT
  Sex: Female
  Weight: 71.882 kg

DRUGS (27)
  1. EXJADE [Suspect]
     Indication: IRON OVERLOAD
     Dosage: 1250 UNK, QD
     Route: 048
     Dates: start: 20070208
  2. EXJADE [Suspect]
     Indication: BLOOD PRODUCT TRANSFUSION DEPENDENT
     Dosage: UNK DOSE DECREASED
     Route: 048
     Dates: end: 20090814
  3. EXJADE [Suspect]
     Indication: MYELODYSPLASTIC SYNDROME
  4. EXJADE [Suspect]
     Indication: ANAEMIA
  5. GERITOL                                 /USA/ [Concomitant]
     Dosage: UNK
  6. STOOL SOFTENER [Concomitant]
     Dosage: UNK
  7. MYLANTA                                 /AUS/ [Concomitant]
     Dosage: UNK
     Route: 048
  8. CENTRUM [Concomitant]
     Dosage: UNK
     Route: 048
  9. RUBBING ALCOHOL [Concomitant]
  10. IPRATROPIUM BROMIDE [Concomitant]
  11. CALCIUM MAGNESIUM ZINC [Concomitant]
     Dosage: UNK
     Route: 048
  12. CITALOPRAM HYDROBROMIDE [Concomitant]
     Dosage: 40 MG, QD
     Route: 048
  13. TYLENOL (CAPLET) [Concomitant]
     Dosage: 1000 MG, PRN
     Route: 048
  14. PREVACID [Concomitant]
     Dosage: 30 MG, QD
  15. ALBUTEROL [Concomitant]
     Dosage: 1 PUFF QID
  16. ONDANSETRON [Concomitant]
     Dosage: 8 MG, Q8H
  17. LIDOCAINE HCL VISCOUS [Concomitant]
     Dosage: UNK
     Route: 052
  18. FLOVENT [Concomitant]
  19. LACTAID [Concomitant]
     Dosage: UNK
  20. DONNATAL [Concomitant]
     Dosage: UNK
  21. VITAMIN B6 [Concomitant]
     Dosage: UNK
  22. MIRALAX [Concomitant]
     Dosage: UNK
     Route: 048
  23. SENNA-S (DOCUSATE SODIUM/SENNA ALEXANDRINA) [Concomitant]
     Route: 048
  24. VITAMIN D [Concomitant]
     Route: 048
  25. VIDAZA [Concomitant]
  26. ARANESP [Concomitant]
  27. NEULASTA [Suspect]
     Indication: NEUTROPENIA

REACTIONS (28)
  - ABDOMINAL PAIN [None]
  - ALANINE AMINOTRANSFERASE INCREASED [None]
  - ARTHRALGIA [None]
  - ASPARTATE AMINOTRANSFERASE INCREASED [None]
  - ASTHMA [None]
  - BLOOD ALKALINE PHOSPHATASE INCREASED [None]
  - BLOOD POTASSIUM DECREASED [None]
  - BLOOD SODIUM DECREASED [None]
  - DEMENTIA [None]
  - DIABETES MELLITUS [None]
  - DIABETIC NEUROPATHY [None]
  - DIARRHOEA [None]
  - DYSKINESIA [None]
  - DYSPNOEA [None]
  - ESCHERICHIA URINARY TRACT INFECTION [None]
  - FATIGUE [None]
  - GASTROENTERITIS VIRAL [None]
  - HYPOAESTHESIA [None]
  - HYPOVENTILATION [None]
  - LIVER FUNCTION TEST ABNORMAL [None]
  - MUSCLE SPASMS [None]
  - OSTEOARTHRITIS [None]
  - OSTEOPOROSIS [None]
  - PARAESTHESIA [None]
  - PLATELET COUNT INCREASED [None]
  - RECTAL HAEMORRHAGE [None]
  - RENAL FAILURE CHRONIC [None]
  - VITAMIN D DECREASED [None]
